FAERS Safety Report 7509465-X (Version None)
Quarter: 2011Q2

REPORT INFORMATION
  Report Type: 
  Country: None (occurrence: None)
  Receive Date: 20110527
  Receipt Date: 20110515
  Transmission Date: 20111010
  Serious: Yes (Other)
  Sender: FDA-Public Use
  Company Number: US-BAYER-2011-043571

PATIENT
  Sex: Female

DRUGS (1)
  1. SODIUM BICARBONATE [Suspect]
     Indication: DYSPEPSIA
     Dosage: UNK
     Route: 048
     Dates: start: 20110501

REACTIONS (2)
  - ASTHENIA [None]
  - FEELING ABNORMAL [None]
